FAERS Safety Report 5879835-4 (Version None)
Quarter: 2008Q3

REPORT INFORMATION
  Report Type: 
  Country: None (occurrence: None)
  Receive Date: 20080912
  Receipt Date: 20080910
  Transmission Date: 20090109
  Serious: Yes (Death, Hospitalization)
  Sender: FDA-Public Use
  Company Number: FR-BRISTOL-MYERS SQUIBB COMPANY-14254320

PATIENT
  Age: 94 Year
  Sex: Female

DRUGS (5)
  1. COUMADIN [Suspect]
     Indication: ATRIAL FIBRILLATION
     Dates: start: 20080609, end: 20080615
  2. CALCIPARINE [Suspect]
     Dates: start: 20080605
  3. KARDEGIC [Suspect]
     Dosage: DOSE REDUCED TO 75MG/D ON 06-JUN-2008.
     Dates: end: 20080614
  4. AMOXICILLIN [Suspect]
     Indication: URINARY TRACT INFECTION
     Dates: start: 20080610, end: 20080618
  5. CORDARONE [Suspect]
     Indication: ATRIAL FIBRILLATION
     Dates: start: 20080609

REACTIONS (4)
  - HAEMATOMA [None]
  - INTERNATIONAL NORMALISED RATIO INCREASED [None]
  - SHOCK [None]
  - URINARY TRACT INFECTION [None]
